FAERS Safety Report 5325042-3 (Version None)
Quarter: 2007Q2

REPORT INFORMATION
  Report Type: 
  Country: None (occurrence: None)
  Receive Date: 20070515
  Receipt Date: 20070511
  Transmission Date: 20071010
  Serious: Yes (Other)
  Sender: FDA-Public Use
  Company Number: US-ASTRAZENECA-2007UW07386

PATIENT
  Age: 59 Year
  Sex: Male
  Weight: 85.9 kg

DRUGS (2)
  1. ARIMIDEX [Suspect]
     Indication: BREAST CANCER MALE
     Route: 048
     Dates: start: 20011217, end: 20070101
  2. HERBAL SUPPLEMENTS [Concomitant]

REACTIONS (4)
  - HAIR GROWTH ABNORMAL [None]
  - LIBIDO DECREASED [None]
  - PROSTATE CANCER [None]
  - WEIGHT INCREASED [None]
